FAERS Safety Report 10760008 (Version 3)
Quarter: 2015Q2

REPORT INFORMATION
  Report Type: Spontaneous
  Country: JP (occurrence: JP)
  Receive Date: 20150203
  Receipt Date: 20150615
  Transmission Date: 20150821
  Serious: Yes (Other)
  Sender: FDA-Public Use
  Company Number: JP-ROCHE-1530773

PATIENT
  Age: 25 Day
  Sex: Female
  Weight: 1.29 kg

DRUGS (5)
  1. KENKETSU VENOGLOBULIN-IH [Concomitant]
     Route: 042
     Dates: start: 20131224
  2. VALIXA [Suspect]
     Active Substance: VALGANCICLOVIR
     Indication: CONGENITAL CYTOMEGALOVIRUS INFECTION
     Route: 048
     Dates: start: 20131224, end: 20140203
  3. EPOETIN ALFA [Concomitant]
     Active Substance: ERYTHROPOIETIN
     Indication: ANAEMIA NEONATAL
     Dosage: 0.2ML/TIME (BODY WEIGHT: FROM 1200 TO 1600G), 0.25ML/TIME (BODY WEIGHT: FROM 1600 TO 2000G), TWICE/W
     Route: 058
     Dates: start: 20131231, end: 20140127
  4. INCREMIN (JAPAN) [Concomitant]
     Indication: ANAEMIA NEONATAL
     Route: 048
     Dates: start: 20140416
  5. KENKETSU VENOGLOBULIN-IH [Concomitant]
     Route: 065
     Dates: start: 20131231

REACTIONS (1)
  - Genital haemorrhage [Recovered/Resolved]

NARRATIVE: CASE EVENT DATE: 20140105
